FAERS Safety Report 20896830 (Version 1)
Quarter: 2022Q2

REPORT INFORMATION
  Report Type: Report from Study
  Country: US (occurrence: US)
  Receive Date: 20220531
  Receipt Date: 20220531
  Transmission Date: 20220720
  Serious: Yes (Other)
  Sender: FDA-Public Use
  Company Number: US-BAYER-2022A074000

PATIENT
  Age: 56 Year
  Sex: Male

DRUGS (2)
  1. STIVARGA [Suspect]
     Active Substance: REGORAFENIB
     Indication: Rectal cancer
     Dosage: DAILY DOSE 80 MG (DAILY  FOR 4 DAYS AND THEN WAS PUT ON HOLD)
     Route: 048
     Dates: start: 202204, end: 202204
  2. STIVARGA [Suspect]
     Active Substance: REGORAFENIB
     Indication: Rectal cancer
     Dosage: 40 MG, QD (DAY FOR 21 DAYS ON AND 7 DAYS OFF)
     Route: 048
     Dates: start: 20220506

REACTIONS (6)
  - Hypotension [Recovered/Resolved]
  - Internal haemorrhage [Recovered/Resolved]
  - Back pain [Recovered/Resolved]
  - Nausea [Recovered/Resolved]
  - Headache [Recovered/Resolved]
  - Off label use [None]

NARRATIVE: CASE EVENT DATE: 20220401
